FAERS Safety Report 13913350 (Version 1)
Quarter: 2017Q3

REPORT INFORMATION
  Report Type: Spontaneous
  Country: US (occurrence: US)
  Receive Date: 20170828
  Receipt Date: 20170828
  Transmission Date: 20171127
  Serious: No
  Sender: FDA-Public Use
  Company Number: US-ROCHE-1129096

PATIENT
  Age: 52 Year
  Sex: Female
  Weight: 82.86 kg

DRUGS (5)
  1. NUTROPIN AQ [Suspect]
     Active Substance: SOMATROPIN
     Indication: GROWTH HORMONE DEFICIENCY
     Dosage: 2 UNITS A DAY
     Route: 050
     Dates: start: 19990419
  2. ATENOLOL/CHLORTHALIDONE [Concomitant]
     Active Substance: ATENOLOL\CHLORTHALIDONE
     Dosage: 50/25 MG
     Route: 065
  3. SYNTHROID [Concomitant]
     Active Substance: LEVOTHYROXINE SODIUM
     Route: 065
  4. XANAX [Concomitant]
     Active Substance: ALPRAZOLAM
     Route: 065
  5. NUTROPIN AQ [Suspect]
     Active Substance: SOMATROPIN
     Indication: FATIGUE

REACTIONS (11)
  - Carpal tunnel syndrome [Unknown]
  - Red blood cell sedimentation rate increased [Unknown]
  - Antinuclear antibody increased [Unknown]
  - Hypoaesthesia [Unknown]
  - Fatigue [Unknown]
  - Hypertension [Unknown]
  - Menstruation irregular [Unknown]
  - Hypothyroidism [Unknown]
  - Paraesthesia [Unknown]
  - Fibromyalgia [Unknown]
  - C-reactive protein increased [Unknown]

NARRATIVE: CASE EVENT DATE: 19990917
